FAERS Safety Report 20083190 (Version 1)
Quarter: 2021Q4

REPORT INFORMATION
  Report Type: Spontaneous
  Country: DE (occurrence: DE)
  Receive Date: 20211117
  Receipt Date: 20211117
  Transmission Date: 20220303
  Serious: Yes (Congenital Anomaly)
  Sender: FDA-Public Use
  Company Number: DE-EMBRYOTOX-202003064

PATIENT
  Age: 3 Week
  Sex: Female
  Weight: 3.62 kg

DRUGS (8)
  1. PREGABALIN [Suspect]
     Active Substance: PREGABALIN
     Indication: Pain
     Dosage: 50 [MG/D ]
     Route: 064
  2. MESALAMINE [Suspect]
     Active Substance: MESALAMINE
     Indication: Colitis ulcerative
     Dosage: UNK
     Route: 064
     Dates: start: 20191221, end: 20200927
  3. PANTOPRAZOLE [Concomitant]
     Active Substance: PANTOPRAZOLE
     Indication: Gastritis prophylaxis
     Dosage: 20 [MG/D (BEI BEDARF) ]/ IF REQUIRED
     Route: 064
  4. BRIVUDINE [Concomitant]
     Active Substance: BRIVUDINE
     Indication: Herpes zoster
     Dosage: 125 [MG/D ]
     Route: 064
  5. CALCIUM [Concomitant]
     Active Substance: CALCIUM
     Indication: Prophylaxis
     Dosage: 500 [MG/D ]
     Route: 064
     Dates: end: 20200225
  6. PREDNISOLON                        /00016202/ [Concomitant]
     Indication: Colitis ulcerative
     Dosage: 5 [MG/D ]
     Route: 064
     Dates: start: 20191221, end: 20200927
  7. VITAMIN D                          /00107901/ [Concomitant]
     Indication: Vitamin D deficiency
     Dosage: 400 [I.E./D ]
     Route: 064
  8. VITAMIN B KOMPLEX                  /00003501/ [Concomitant]
     Indication: Vitamin B complex deficiency
     Dosage: UNK
     Route: 064

REACTIONS (2)
  - Atrial septal defect [Unknown]
  - Foetal exposure during pregnancy [Recovered/Resolved]
